FAERS Safety Report 25344009 (Version 1)
Quarter: 2025Q2

REPORT INFORMATION
  Report Type: Spontaneous
  Country: US (occurrence: US)
  Receive Date: 20250521
  Receipt Date: 20250521
  Transmission Date: 20250717
  Serious: No
  Sender: SANOFI AVENTIS
  Company Number: US-SA-2025SA144661

PATIENT
  Age: 11 Year
  Sex: Male
  Weight: 30.6 kg

DRUGS (4)
  1. DUPIXENT [Suspect]
     Active Substance: DUPILUMAB
     Indication: Dermatitis atopic
     Dosage: 200 MG, QOW
     Route: 058
     Dates: end: 2025
  2. GENOTROPIN [Concomitant]
     Active Substance: SOMATROPIN
  3. NORDITROPIN [Concomitant]
     Active Substance: SOMATROPIN
  4. GENOTROPIN [Concomitant]
     Active Substance: SOMATROPIN

REACTIONS (1)
  - Rebound atopic dermatitis [Unknown]

NARRATIVE: CASE EVENT DATE: 20250101
